FAERS Safety Report 6765714-7 (Version None)
Quarter: 2010Q2

REPORT INFORMATION
  Report Type: 
  Country: None (occurrence: None)
  Receive Date: 20100610
  Receipt Date: 20100610
  Transmission Date: 20101027
  Serious: Yes (Hospitalization)
  Sender: FDA-Public Use
  Company Number: None

PATIENT
  Age: 82 Year
  Sex: Male
  Weight: 70.3075 kg

DRUGS (1)
  1. WELCHOL [Suspect]
     Indication: BLOOD CHOLESTEROL ABNORMAL
     Dosage: 2 TABLETS DAILY MOUTH
     Dates: start: 20081104, end: 20100507

REACTIONS (1)
  - DIZZINESS [None]
